FAERS Safety Report 4497016-6 (Version None)
Quarter: 2004Q3

REPORT INFORMATION
  Report Type: 
  Country: None (occurrence: None)
  Receive Date: 20040928
  Receipt Date: 20040727
  Transmission Date: 20050211
  Serious: No
  Sender: FDA-Public Use
  Company Number: 04P-163-0268219-00

PATIENT
  Age: 68 Year
  Sex: Female

DRUGS (8)
  1. HUMIRA [Suspect]
     Indication: RHEUMATOID ARTHRITIS
     Dosage: 40 MG, 1 IN 2 WK, SUBCTANEOUS
     Route: 058
     Dates: start: 20040601
  2. METHOTREXATE [Concomitant]
  3. TRAMADOL HYDRCHLORIDE [Concomitant]
  4. ALENDRONATE SODIUM [Concomitant]
  5. CALCIUM CARBONATE [Concomitant]
  6. GLUCOVORIN [Concomitant]
  7. ESOMEPRAZOLE [Concomitant]
  8. KLORNOPIN [Concomitant]

REACTIONS (4)
  - FATIGUE [None]
  - FUNGAL INFECTION [None]
  - INFLUENZA [None]
  - SINUSITIS [None]
